FAERS Safety Report 24238410 (Version 2)
Quarter: 2024Q3

REPORT INFORMATION
  Report Type: Spontaneous
  Country: US (occurrence: US)
  Receive Date: 20240822
  Receipt Date: 20240916
  Transmission Date: 20241016
  Serious: Yes (Other)
  Sender: ELI LILLY AND CO
  Company Number: US-ELI_LILLY_AND_COMPANY-US202408013430

PATIENT
  Age: 48 Year
  Sex: Female

DRUGS (1)
  1. VERZENIO [Suspect]
     Active Substance: ABEMACICLIB
     Indication: Bone cancer
     Dosage: 1 DOSAGE FORM, BID
     Route: 048
     Dates: start: 20240814

REACTIONS (6)
  - Diarrhoea [Unknown]
  - Off label use [Unknown]
  - Insomnia [Unknown]
  - Stomatitis [Unknown]
  - Fatigue [Unknown]
  - Nausea [Unknown]
